FAERS Safety Report 4338191-3 (Version None)
Quarter: 2004Q2

REPORT INFORMATION
  Report Type: 
  Country: None (occurrence: None)
  Receive Date: 20040409
  Receipt Date: 20040331
  Transmission Date: 20050107
  Serious: Yes (Hospitalization)
  Sender: FDA-Public Use
  Company Number: 2004-04-0008

PATIENT
  Age: 47 Year
  Sex: Male

DRUGS (2)
  1. REBETOL [Suspect]
     Indication: HEPATITIS C
     Dosage: 600 MG ORAL
     Route: 048
     Dates: start: 20030804, end: 20040119
  2. INTRON A [Suspect]
     Indication: HEPATITIS C
     Dosage: 6 MU INTRAMUSCULAR
     Route: 030
     Dates: start: 20030804, end: 20040324

REACTIONS (2)
  - ASTHENIA [None]
  - DIFFICULTY IN WALKING [None]
